FAERS Safety Report 7167761-2 (Version None)
Quarter: 2010Q4

REPORT INFORMATION
  Report Type: 
  Country: None (occurrence: None)
  Receive Date: 20101216
  Receipt Date: 20101006
  Transmission Date: 20110411
  Serious: No
  Sender: FDA-Public Use
  Company Number: A0885371A

PATIENT
  Age: 55 Year
  Sex: Female

DRUGS (2)
  1. NICORETTE [Suspect]
     Indication: SMOKING CESSATION THERAPY
  2. NICOTINE [Suspect]
     Indication: SMOKING CESSATION THERAPY

REACTIONS (2)
  - APPLICATION SITE IRRITATION [None]
  - BLOOD GLUCOSE INCREASED [None]
